FAERS Safety Report 7314353-8 (Version None)
Quarter: 2011Q1

REPORT INFORMATION
  Report Type: 
  Country: None (occurrence: None)
  Receive Date: 20110225
  Receipt Date: 20100729
  Transmission Date: 20110831
  Serious: No
  Sender: FDA-Public Use
  Company Number: US-MYLANLABS-2010S1013660

PATIENT
  Age: 30 Year
  Sex: Female

DRUGS (5)
  1. LEXAPRO [Concomitant]
  2. ORTHO TRI-CYCLEN [Concomitant]
  3. AMNESTEEM [Suspect]
     Indication: ACNE
     Route: 048
     Dates: start: 20100521, end: 20100624
  4. EPIDUO [Concomitant]
     Route: 061
  5. SYNTHROID [Concomitant]

REACTIONS (1)
  - BLOOD TRIGLYCERIDES INCREASED [None]
